FAERS Safety Report 4666187-0 (Version None)
Quarter: 2005Q2

REPORT INFORMATION
  Report Type: 
  Country: None (occurrence: None)
  Receive Date: 20050517
  Receipt Date: 20050517
  Transmission Date: 20051028
  Serious: Yes (Death)
  Sender: FDA-Public Use
  Company Number: None

PATIENT
  Age: 30 Year
  Sex: Female
  Weight: 96 kg

DRUGS (4)
  1. HALDOL [Suspect]
     Indication: PSYCHOTIC DISORDER
     Dosage: 10 MG PO TID
     Route: 048
  2. PROLIXIN [Suspect]
     Indication: PSYCHOTIC DISORDER
     Dosage: 5 MG PO BID AND 10 MG IM
     Route: 048
  3. COGENTIN [Concomitant]
  4. DEPAKOTE [Concomitant]

REACTIONS (21)
  - ACINETOBACTER INFECTION [None]
  - APALLIC SYNDROME [None]
  - ATELECTASIS [None]
  - ATRIOVENTRICULAR BLOCK [None]
  - BRADYCARDIA [None]
  - BRONCHIAL OBSTRUCTION [None]
  - CARDIAC ARREST [None]
  - DEEP VEIN THROMBOSIS [None]
  - DIALYSIS [None]
  - DISSEMINATED INTRAVASCULAR COAGULATION [None]
  - ENCEPHALITIS [None]
  - HYPOTENSION [None]
  - ISCHAEMIC HEPATITIS [None]
  - MULTI-ORGAN DISORDER [None]
  - NEUROLEPTIC MALIGNANT SYNDROME [None]
  - OXYGEN SATURATION DECREASED [None]
  - RENAL FAILURE ACUTE [None]
  - RENAL TUBULAR NECROSIS [None]
  - SEPTIC SHOCK [None]
  - SHOCK [None]
  - UROSEPSIS [None]
